FAERS Safety Report 7609001-3 (Version None)
Quarter: 2011Q3

REPORT INFORMATION
  Report Type: 
  Country: None (occurrence: None)
  Receive Date: 20110706
  Receipt Date: 20110621
  Transmission Date: 20111222
  Serious: Yes (Death, Life-Threatening, Other)
  Sender: FDA-Public Use
  Company Number: 2011MA007883

PATIENT
  Age: 42 Year
  Sex: Female

DRUGS (1)
  1. FEVERALL [Suspect]

REACTIONS (12)
  - HEPATIC FAILURE [None]
  - INTRACRANIAL PRESSURE INCREASED [None]
  - METABOLIC ACIDOSIS [None]
  - CARDIAC ARREST [None]
  - MULTI-ORGAN FAILURE [None]
  - BLOOD CREATINE PHOSPHOKINASE INCREASED [None]
  - PULSELESS ELECTRICAL ACTIVITY [None]
  - TACHYCARDIA [None]
  - HYPOXIA [None]
  - PROPOFOL INFUSION SYNDROME [None]
  - HEPATIC ENCEPHALOPATHY [None]
  - HYPOTENSION [None]
